FAERS Safety Report 17187825 (Version 1)
Quarter: 2019Q4

REPORT INFORMATION
  Report Type: Report from Study
  Country: None (occurrence: CO)
  Receive Date: 20191221
  Receipt Date: 20191221
  Transmission Date: 20200122
  Serious: Yes (Other)
  Sender: FDA-Public Use
  Company Number: CO-ABBVIE-19K-036-3203935-00

PATIENT
  Sex: Female
  Weight: 73 kg

DRUGS (3)
  1. HUMIRA [Suspect]
     Active Substance: ADALIMUMAB
     Indication: RHEUMATOID ARTHRITIS
     Route: 058
  2. MYLANTA [Concomitant]
     Active Substance: ALUMINUM HYDROXIDE\DIMETHICONE\MAGNESIUM HYDROXIDE
     Indication: CHRONIC GASTRITIS
     Route: 048
     Dates: start: 201909
  3. HUMIRA [Suspect]
     Active Substance: ADALIMUMAB
     Indication: RHEUMATOID ARTHRITIS
     Route: 058
     Dates: start: 20150922

REACTIONS (10)
  - Arthralgia [Recovering/Resolving]
  - Chikungunya virus infection [Unknown]
  - Facial pain [Unknown]
  - Tooth fracture [Unknown]
  - Spondylitis [Recovering/Resolving]
  - Inflammation [Recovering/Resolving]
  - Uveitis [Recovering/Resolving]
  - Pain [Recovering/Resolving]
  - Inflammation [Unknown]
  - Bruxism [Unknown]

NARRATIVE: CASE EVENT DATE: 2019
